FAERS Safety Report 9758124 (Version 1)
Quarter: 2013Q4

REPORT INFORMATION
  Report Type: Spontaneous
  Country: TR (occurrence: TR)
  Receive Date: 20131216
  Receipt Date: 20131216
  Transmission Date: 20140711
  Serious: Yes (Hospitalization)
  Sender: FDA-Public Use
  Company Number: TR-BAYER-2013-149224

PATIENT
  Age: 63 Year
  Sex: Male
  Weight: 83 kg

DRUGS (4)
  1. ASPIRIN [Suspect]
  2. CORASPIN [Concomitant]
  3. ADDITIONAL STUDY MEDICATION [Concomitant]
     Indication: ATRIAL FIBRILLATION
  4. COUMADIN [Suspect]
     Indication: ATRIAL FIBRILLATION
     Dosage: 5 MG, UNK

REACTIONS (3)
  - Malaise [None]
  - Unevaluable event [None]
  - Haemorrhage [None]
